FAERS Safety Report 6556543-8 (Version None)
Quarter: 2010Q1

REPORT INFORMATION
  Report Type: 
  Country: None (occurrence: None)
  Receive Date: 20100128
  Receipt Date: 20100122
  Transmission Date: 20100710
  Serious: Yes (Hospitalization)
  Sender: FDA-Public Use
  Company Number: US-AMGEN-QUU354847

PATIENT
  Sex: Female

DRUGS (1)
  1. ENBREL [Suspect]
     Indication: RHEUMATOID ARTHRITIS
     Route: 058

REACTIONS (10)
  - ABDOMINAL DISTENSION [None]
  - ABDOMINAL PAIN [None]
  - ADHESION [None]
  - ARTHRALGIA [None]
  - CHOLECYSTECTOMY [None]
  - GASTROINTESTINAL INFECTION [None]
  - HEPATIC PAIN [None]
  - JOINT SWELLING [None]
  - NEEDLE ISSUE [None]
  - PAIN [None]
